FAERS Safety Report 5021070-6 (Version None)
Quarter: 2006Q2

REPORT INFORMATION
  Report Type: 
  Country: None (occurrence: None)
  Receive Date: 20060608
  Receipt Date: 20060530
  Transmission Date: 20061013
  Serious: Yes (Other)
  Sender: FDA-Public Use
  Company Number: US-JNJFOC-20050806503

PATIENT
  Sex: Female
  Weight: 56.7 kg

DRUGS (9)
  1. RISPERDAL [Suspect]
     Route: 048
  2. RISPERDAL [Suspect]
     Route: 048
  3. RISPERDAL [Suspect]
     Route: 048
  4. RISPERDAL [Suspect]
     Indication: SCHIZOAFFECTIVE DISORDER
     Route: 048
  5. ELIDEL [Concomitant]
     Indication: MULTIPLE ALLERGIES
     Route: 061
  6. ELOCON [Concomitant]
     Indication: MULTIPLE ALLERGIES
     Route: 061
  7. ANTIHYPERTENSIVE [Concomitant]
  8. LEXAPRO [Concomitant]
     Indication: SCHIZOAFFECTIVE DISORDER
  9. COGENTIN [Concomitant]
     Indication: EXTRAPYRAMIDAL DISORDER

REACTIONS (22)
  - ASTHENIA [None]
  - BALANCE DISORDER [None]
  - BREAST MASS [None]
  - CATARACT [None]
  - CEREBROVASCULAR ACCIDENT [None]
  - COORDINATION ABNORMAL [None]
  - DIFFICULTY IN WALKING [None]
  - DIZZINESS [None]
  - DYSGRAPHIA [None]
  - DYSPHAGIA [None]
  - FEELING ABNORMAL [None]
  - HEAT STROKE [None]
  - HEMIPARESIS [None]
  - HYPERTENSION [None]
  - MEMORY IMPAIRMENT [None]
  - MUSCLE SPASMS [None]
  - OEDEMA PERIPHERAL [None]
  - PARALYSIS [None]
  - PERIORBITAL OEDEMA [None]
  - SOMNOLENCE [None]
  - SPEECH DISORDER [None]
  - VERTIGO [None]
